FAERS Safety Report 25682154 (Version 1)
Quarter: 2025Q3

REPORT INFORMATION
  Report Type: Spontaneous
  Country: US (occurrence: US)
  Receive Date: 20250814
  Receipt Date: 20250814
  Transmission Date: 20251021
  Serious: Yes (Death, Hospitalization)
  Sender: AMGEN
  Company Number: US-AMGEN-USASP2025157702

PATIENT
  Age: 89 Year
  Sex: Female

DRUGS (2)
  1. PREDNISONE [Suspect]
     Active Substance: PREDNISONE
     Indication: Rheumatoid arthritis
     Dosage: UNK, QD
     Route: 065
  2. LEFLUNOMIDE [Suspect]
     Active Substance: LEFLUNOMIDE
     Indication: Rheumatoid arthritis
     Dosage: UNK, QD
     Route: 065

REACTIONS (9)
  - Death [Fatal]
  - Cerebral infarction [Unknown]
  - Encephalitis [Unknown]
  - Staphylococcal infection [Unknown]
  - Vascular device infection [Unknown]
  - Bundle branch block right [Unknown]
  - Atrial thrombosis [Unknown]
  - Lambl^s excrescences [Unknown]
  - Cellulitis [Unknown]
